FAERS Safety Report 4840846-9 (Version None)
Quarter: 2005Q4

REPORT INFORMATION
  Report Type: 
  Country: None (occurrence: None)
  Receive Date: 20051130
  Receipt Date: 20050803
  Transmission Date: 20060501
  Serious: No
  Sender: FDA-Public Use
  Company Number: US-BRISTOL-MYERS SQUIBB COMPANY-13061692

PATIENT
  Age: 72 Year
  Sex: Female

DRUGS (4)
  1. AVALIDE [Suspect]
     Indication: HYPERTENSION
  2. ASPIRIN [Concomitant]
  3. LIPITOR [Concomitant]
  4. PLAVIX [Concomitant]

REACTIONS (3)
  - CONTUSION [None]
  - DIZZINESS [None]
  - RASH [None]
